FAERS Safety Report 25207590 (Version 2)
Quarter: 2025Q2

REPORT INFORMATION
  Report Type: Report from Study
  Country: AR (occurrence: AR)
  Receive Date: 20250417
  Receipt Date: 20250423
  Transmission Date: 20250716
  Serious: Yes (Hospitalization)
  Sender: EMD SERONO INC
  Company Number: AR-Merck Healthcare KGaA-2025018642

PATIENT
  Sex: Male

DRUGS (1)
  1. SAIZEN [Suspect]
     Active Substance: SOMATROPIN
     Indication: Small for dates baby
     Dates: start: 20201102

REACTIONS (2)
  - Fall [Unknown]
  - Seizure [Unknown]
